FAERS Safety Report 20312967 (Version 1)
Quarter: 2022Q1

REPORT INFORMATION
  Report Type: Other
  Country: None (occurrence: US)
  Receive Date: 20220108
  Receipt Date: 20220108
  Transmission Date: 20220423
  Serious: Yes (Congenital Anomaly, Other)
  Sender: FDA-Public Use
  Company Number: US-Taro Pharmaceuticals USA, Inc.-2123748

PATIENT
  Sex: Female
  Weight: 1.92 kg

DRUGS (5)
  1. ONDANSETRON HYDROCHLORIDE [Suspect]
     Active Substance: ONDANSETRON HYDROCHLORIDE
     Route: 064
  2. CITALOPRAM [Suspect]
     Active Substance: CITALOPRAM HYDROBROMIDE
  3. METHADONE [Suspect]
     Active Substance: METHADONE HYDROCHLORIDE
  4. ALPRAZOLAM [Suspect]
     Active Substance: ALPRAZOLAM
  5. TRAMADOL [Suspect]
     Active Substance: TRAMADOL

REACTIONS (4)
  - Congenital growth hormone deficiency [Unknown]
  - Low birth weight baby [Unknown]
  - Exposure via breast milk [Unknown]
  - Foetal exposure during pregnancy [Unknown]
